FAERS Safety Report 5227901-9 (Version None)
Quarter: 2007Q1

REPORT INFORMATION
  Report Type: 
  Country: None (occurrence: None)
  Receive Date: 20070202
  Receipt Date: 20070122
  Transmission Date: 20070707
  Serious: Yes (Hospitalization, Other)
  Sender: FDA-Public Use
  Company Number: US-PFIZER INC-2006116232

PATIENT
  Sex: Male

DRUGS (1)
  1. BEXTRA [Suspect]
     Indication: ARTHRITIS
     Dates: start: 20020523, end: 20031001

REACTIONS (1)
  - CEREBROVASCULAR ACCIDENT [None]
